FAERS Safety Report 7079104 (Version 4)
Quarter: 2013Q4

REPORT INFORMATION
  Report Type: Spontaneous
  Country: US (occurrence: US)
  Receive Date: 20090812
  Receipt Date: 20131223
  Transmission Date: 20140711
  Serious: Yes (Hospitalization)
  Sender: FDA-Public Use
  Company Number: US-BAYER-200929025NA

PATIENT
  Age: 18 Year
  Sex: Female
  Weight: 70 kg

DRUGS (20)
  1. YAZ [Suspect]
     Indication: CONTRACEPTION
     Dosage: 1 DF (DAILY DOSE), QD, ORAL
     Route: 048
     Dates: start: 20080819, end: 20081124
  2. YAZ [Suspect]
     Indication: MENSTRUAL CYCLE MANAGEMENT
  3. YASMIN [Suspect]
     Indication: ORAL CONTRACEPTION
     Dosage: 1 DF (DAILY DOSE), QD, ORAL
     Route: 048
     Dates: start: 20080819, end: 20081124
  4. YASMIN [Suspect]
     Indication: MENSTRUAL CYCLE MANAGEMENT
  5. LO/OVRAL-28 [Suspect]
     Indication: MENSTRUAL CYCLE MANAGEMENT
     Dates: start: 20081125
  6. LO/OVRAL-28 [Suspect]
     Indication: CONTRACEPTION
  7. DOXYTAB [Concomitant]
     Dosage: 100 MG (DAILY DOSE), , ORAL
     Route: 048
     Dates: start: 20080818
  8. VIBRAMYCIN [Concomitant]
     Indication: CHOLELITHIASIS
     Dosage: 100 MG, BID
  9. VIBRAMYCIN [Concomitant]
     Indication: CHOLECYSTITIS
  10. FLAGYL [Concomitant]
     Indication: CHOLELITHIASIS
     Dosage: 500 MG, BID
     Route: 048
  11. FLAGYL [Concomitant]
     Indication: CHOLECYSTITIS
  12. ERYTHROMYCIN [Concomitant]
  13. CLINDESSE [Concomitant]
  14. ZANTAC [Concomitant]
  15. PERCOCET [Concomitant]
  16. AMOXICILLIN W/CLAVULANATE POTASSIUM [Concomitant]
     Dosage: 500/125MG
  17. ROXICET [Concomitant]
     Dosage: 5/325 MG TAB
  18. CIPROFLOXACIN [Concomitant]
     Dosage: 500 MG, UNK
  19. ONDASETRON [Concomitant]
     Dosage: 4 MG, UNK
  20. ASPIRIN [Concomitant]

REACTIONS (11)
  - Metrorrhagia [Recovered/Resolved]
  - Cholelithiasis [Unknown]
  - Cholecystitis [Unknown]
  - Injury [Unknown]
  - Pain [Unknown]
  - Asthenia [Unknown]
  - Abdominal pain [Unknown]
  - Nausea [Unknown]
  - Vomiting [Unknown]
  - Abdominal pain upper [Unknown]
  - Biliary colic [Unknown]
